FAERS Safety Report 8711709 (Version 3)
Quarter: 2013Q1

REPORT INFORMATION
  Report Type: Spontaneous
  Country: BR (occurrence: BR)
  Receive Date: 20120807
  Receipt Date: 20130124
  Transmission Date: 20140127
  Serious: Yes (Other)
  Sender: FDA-Public Use
  Company Number: PHHY2012BR066958

PATIENT
  Sex: Female
  Weight: 103 kg

DRUGS (2)
  1. FORASEQ [Suspect]
     Indication: BRONCHITIS
     Dosage: 1 DF (12/400 UG), IN THE MORNING AND AT NIGHT
     Dates: start: 2004
  2. OMEPRAZOLE [Suspect]
     Indication: GASTRIC DISORDER
     Dosage: 20 MG, ONE IN THE MORNING

REACTIONS (8)
  - Angle closure glaucoma [Unknown]
  - Osteoarthritis [Unknown]
  - Kyphosis [Unknown]
  - Gait disturbance [Unknown]
  - Bone disorder [Unknown]
  - Bronchitis chronic [Unknown]
  - Blood pressure inadequately controlled [Unknown]
  - Blood cholesterol increased [Unknown]
